FAERS Safety Report 6087159-8 (Version None)
Quarter: 2009Q1

REPORT INFORMATION
  Report Type: 
  Country: None (occurrence: None)
  Receive Date: 20090223
  Receipt Date: 20090213
  Transmission Date: 20090719
  Serious: Yes (Other)
  Sender: FDA-Public Use
  Company Number: BR-PFIZER INC-2008067876

PATIENT

DRUGS (3)
  1. CHAMPIX [Suspect]
     Route: 048
     Dates: start: 20080101, end: 20080808
  2. NATRILIX - SLOW RELEASE [Concomitant]
  3. VITAMINS [Concomitant]

REACTIONS (1)
  - TRIGEMINAL NEURALGIA [None]
